FAERS Safety Report 6866796-4 (Version None)
Quarter: 2010Q2

REPORT INFORMATION
  Report Type: 
  Country: None (occurrence: None)
  Receive Date: 20100607
  Receipt Date: 20080506
  Transmission Date: 20101027
  Serious: No
  Sender: FDA-Public Use
  Company Number: 2008-00086

PATIENT
  Age: 47 Year
  Sex: Male
  Weight: 85.2762 kg

DRUGS (7)
  1. ZICAM INTENSE SINUS RELIEF [Suspect]
     Dosage: BID X 3 DAYS
     Dates: start: 20080328, end: 20080401
  2. GLIMEPIRIDE [Concomitant]
  3. ASPIRIN [Concomitant]
  4. ACTIGALL [Concomitant]
  5. LOVASTATIN [Concomitant]
  6. ALLEGRA [Concomitant]
  7. LEVAQUIN [Concomitant]

REACTIONS (2)
  - AGEUSIA [None]
  - ANOSMIA [None]
